FAERS Safety Report 16646777 (Version 1)
Quarter: 2019Q3

REPORT INFORMATION
  Report Type: Spontaneous
  Country: FR (occurrence: FR)
  Receive Date: 20190730
  Receipt Date: 20190730
  Transmission Date: 20191004
  Serious: Yes (Hospitalization)
  Sender: FDA-Public Use
  Company Number: FR-PFIZER INC-2019316995

PATIENT
  Age: 35 Year
  Sex: Female
  Weight: 55 kg

DRUGS (3)
  1. ALPRAZOLAM. [Suspect]
     Active Substance: ALPRAZOLAM
     Dosage: 15 MG, UNK (60 TABLETS OF 0.25 MG)
     Route: 048
     Dates: start: 20190321, end: 20190321
  2. PRAZEPAM [Suspect]
     Active Substance: PRAZEPAM
     Dosage: 200 MG, UNK (20 TABLETS OF 10 MG)
     Route: 048
     Dates: start: 20190321, end: 20190321
  3. VALSARTAN. [Suspect]
     Active Substance: VALSARTAN
     Dosage: 320 MG, UNK (2 TABLETS OF 160 MG)
     Route: 048
     Dates: start: 20190321, end: 20190321

REACTIONS (2)
  - Altered state of consciousness [Recovered/Resolved]
  - Poisoning deliberate [Recovered/Resolved]

NARRATIVE: CASE EVENT DATE: 20190321
